FAERS Safety Report 25491105 (Version 1)
Quarter: 2025Q2

REPORT INFORMATION
  Report Type: Spontaneous
  Country: GB (occurrence: GB)
  Receive Date: 20250629
  Receipt Date: 20250629
  Transmission Date: 20250717
  Serious: Yes (Other)
  Sender: DEXCEL LTD.
  Company Number: None

PATIENT
  Age: 51 Year
  Sex: Female
  Weight: 95 kg

DRUGS (19)
  1. OMEPRAZOLE [Suspect]
     Active Substance: OMEPRAZOLE
     Dosage: 20MG GASTRO-RESISTANT CAPSULES, TAKE ONE TWICE DAILY
     Dates: start: 20250127
  2. PREDNISOLONEPREDNISOLONE (Specific Substance SUB283) [Concomitant]
     Indication: Ill-defined disorder
     Dates: start: 20250326, end: 20250327
  3. DOXYCYCLINEDOXYCYCLINE (Specific Substance SUB5118) [Concomitant]
     Indication: Ill-defined disorder
     Dates: start: 20250605, end: 20250610
  4. PARACETAMOLPARACETAMOL (Specific Substance SUB155) [Concomitant]
     Indication: Ill-defined disorder
     Dates: start: 20100308
  5. DIAZEPAMDIAZEPAM (Specific Substance SUB4792) [Concomitant]
     Indication: Ill-defined disorder
     Dates: start: 20230112
  6. ESTRADIOL [Concomitant]
     Active Substance: ESTRADIOL
     Indication: Ill-defined disorder
     Dates: start: 20230118
  7. FOLIC ACIDFOLIC ACID (Specific Substance SUB5909) [Concomitant]
     Indication: Ill-defined disorder
     Dates: start: 20230821
  8. SALBUTAMOLSALBUTAMOL (Specific Substance SUB356) [Concomitant]
     Indication: Ill-defined disorder
     Dates: start: 20240509
  9. BECLOMETHASONE DIPROPIONATE\FORMOTEROL FUMARATE\GLYCOPYRROLATE [Concomitant]
     Active Substance: BECLOMETHASONE DIPROPIONATE\FORMOTEROL FUMARATE\GLYCOPYRROLATE
     Indication: Ill-defined disorder
     Dates: start: 20240509
  10. BISOPROLOL [Concomitant]
     Active Substance: BISOPROLOL
     Indication: Ill-defined disorder
     Dates: start: 20240513
  11. METFORMIN [Concomitant]
     Active Substance: METFORMIN HYDROCHLORIDE
     Indication: Ill-defined disorder
     Dates: start: 20240628
  12. MIRTAZAPINE [Concomitant]
     Active Substance: MIRTAZAPINE
     Indication: Ill-defined disorder
     Dates: start: 20241024
  13. CODEINE PHOSPHATECODEINE PHOSPHATE (Specific Substance Variant SUB1... [Concomitant]
     Indication: Ill-defined disorder
     Dates: start: 20241112
  14. BUPRENORPHINE [Concomitant]
     Active Substance: BUPRENORPHINE
     Indication: Ill-defined disorder
     Dates: start: 20241212
  15. METHOTREXATE SODIUM [Concomitant]
     Active Substance: METHOTREXATE SODIUM
     Indication: Ill-defined disorder
     Dates: start: 20241217
  16. SOLIFENACINSOLIFENACIN (Specific Substance SUB8350) [Concomitant]
     Indication: Ill-defined disorder
     Dates: start: 20241217
  17. NITROFURANTOINNITROFURANTOIN (Specific Substance SUB97) [Concomitant]
     Indication: Ill-defined disorder
     Dates: start: 20241219, end: 20250320
  18. ESTRIOL [Concomitant]
     Active Substance: ESTRIOL
     Indication: Ill-defined disorder
     Dates: start: 20250120
  19. MEDI DERMA-SNON-MEDICINAL PRODUCT [Concomitant]
     Indication: Ill-defined disorder
     Dates: start: 20250120

REACTIONS (1)
  - Hypomagnesaemia [Recovered/Resolved]
